FAERS Safety Report 19233152 (Version 1)
Quarter: 2021Q2

REPORT INFORMATION
  Report Type: Spontaneous
  Country: US (occurrence: US)
  Receive Date: 20210507
  Receipt Date: 20210507
  Transmission Date: 20210717
  Serious: No
  Sender: FDA-Public Use
  Company Number: US-MAYNE PHARMA-2020MYN000350

PATIENT

DRUGS (1)
  1. FLUOROURACIL. [Suspect]
     Active Substance: FLUOROURACIL
     Indication: PRODUCT USED FOR UNKNOWN INDICATION
     Dosage: 5 %, QD
     Route: 061
     Dates: start: 20200618, end: 20200704

REACTIONS (3)
  - Intentional product use issue [Unknown]
  - Application site erythema [Unknown]
  - Rash macular [Unknown]

NARRATIVE: CASE EVENT DATE: 20200618
